FAERS Safety Report 13534685 (Version 1)
Quarter: 2017Q2

REPORT INFORMATION
  Report Type: Spontaneous
  Country: US (occurrence: US)
  Receive Date: 20170511
  Receipt Date: 20170511
  Transmission Date: 20170830
  Serious: No
  Sender: FDA-Public Use
  Company Number: US-009507513-1704USA014392

PATIENT
  Age: 70 Year
  Sex: Male

DRUGS (4)
  1. ASMANEX [Suspect]
     Active Substance: MOMETASONE FUROATE
     Indication: ASTHMA
     Dosage: 1 DF, HS, 30 DOSE
     Route: 055
     Dates: end: 20170424
  2. ASPIRIN. [Concomitant]
     Active Substance: ASPIRIN
  3. VITAMINS (UNSPECIFIED) [Concomitant]
     Active Substance: VITAMINS
  4. FLAXSEED [Concomitant]
     Active Substance: FLAX SEED

REACTIONS (9)
  - Insomnia [Recovering/Resolving]
  - Lung disorder [Recovering/Resolving]
  - Cataract [Recovering/Resolving]
  - Prostatic disorder [Recovering/Resolving]
  - Oropharyngeal pain [Recovering/Resolving]
  - Vision blurred [Recovering/Resolving]
  - Bronchial disorder [Recovering/Resolving]
  - Head deformity [Recovering/Resolving]
  - Headache [Recovering/Resolving]
